FAERS Safety Report 7105529-3 (Version None)
Quarter: 2010Q4

REPORT INFORMATION
  Report Type: 
  Country: None (occurrence: None)
  Receive Date: 20101116
  Receipt Date: 20101101
  Transmission Date: 20110411
  Serious: Yes (Hospitalization, Other)
  Sender: FDA-Public Use
  Company Number: FI-ROCHE-738322

PATIENT
  Sex: Male

DRUGS (1)
  1. XELODA [Suspect]
     Indication: INTESTINAL ADENOCARCINOMA
     Dosage: FREQUENCY REPORTED AS 4 + 4 TABLETS PER DAY. 2000 MG + 2000 MG FOR 14 DAYS FOLLOWED BY 7 DAYS REST.
     Route: 065
     Dates: start: 20100810, end: 20101001

REACTIONS (7)
  - ASTHENIA [None]
  - BLISTER [None]
  - C-REACTIVE PROTEIN INCREASED [None]
  - DIARRHOEA [None]
  - INTESTINAL OBSTRUCTION [None]
  - NAUSEA [None]
  - PYREXIA [None]
